FAERS Safety Report 8186166-9 (Version None)
Quarter: 2012Q1

REPORT INFORMATION
  Report Type: 
  Country: None (occurrence: None)
  Receive Date: 20120301
  Receipt Date: 20120215
  Transmission Date: 20120608
  Serious: Yes (Death, Other)
  Sender: FDA-Public Use
  Company Number: 2012-00247

PATIENT
  Age: 60 Year
  Sex: Female

DRUGS (5)
  1. MORPHINE [Concomitant]
  2. SERTRALINE HYDROCHLORIDE [Suspect]
  3. VALPROIC ACID [Concomitant]
  4. AMITRIPTYLINE HCL [Suspect]
  5. OXAZEPAM [Concomitant]

REACTIONS (1)
  - DRUG INTERACTION [None]
